FAERS Safety Report 9473345 (Version 2)
Quarter: 2014Q3

REPORT INFORMATION
  Report Type: Spontaneous
  Country: US (occurrence: US)
  Receive Date: 20130823
  Receipt Date: 20140808
  Transmission Date: 20150326
  Serious: No
  Sender: FDA-Public Use
  Company Number: US-BRISTOL-MYERS SQUIBB COMPANY-18902734

PATIENT
  Age: 46 Year
  Sex: Male
  Weight: 104 kg

DRUGS (2)
  1. ALBUTEROL INHALER [Concomitant]
     Active Substance: ALBUTEROL
     Dosage: 1 PUFF
     Route: 055
  2. SPRYCEL [Suspect]
     Active Substance: DASATINIB
     Indication: CHRONIC MYELOID LEUKAEMIA
     Dosage: ONGOING
     Route: 048
     Dates: start: 20130424

REACTIONS (3)
  - Headache [Unknown]
  - Vision blurred [Unknown]
  - Confusional state [Unknown]

NARRATIVE: CASE EVENT DATE: 20130424
